FAERS Safety Report 5008723-0 (Version None)
Quarter: 2006Q2

REPORT INFORMATION
  Report Type: 
  Country: None (occurrence: None)
  Receive Date: 20060517
  Receipt Date: 20060503
  Transmission Date: 20061013
  Serious: Yes (Hospitalization)
  Sender: FDA-Public Use
  Company Number: 222897

PATIENT
  Age: 55 Year
  Sex: Female

DRUGS (7)
  1. RAPTIVA [Suspect]
     Indication: PSORIASIS
     Dosage: 1/WEEK, SUBCUTANEOUS
     Route: 058
     Dates: start: 20060206
  2. DIOSMIN                      (DIOSMIN) [Concomitant]
  3. LORATADINE [Concomitant]
  4. FLUOXETINE HCL [Concomitant]
  5. VERAPAMIL [Concomitant]
  6. STABLON             (TIANEPTINE) [Concomitant]
  7. ISOPTIN [Concomitant]

REACTIONS (13)
  - BACTERIAL INFECTION [None]
  - BLOOD BICARBONATE INCREASED [None]
  - CHEST X-RAY ABNORMAL [None]
  - CONDITION AGGRAVATED [None]
  - COUGH [None]
  - DYSPNOEA [None]
  - FATIGUE [None]
  - GAMMA-GLUTAMYLTRANSFERASE INCREASED [None]
  - HYPOXIA [None]
  - LUNG DISORDER [None]
  - LYMPHOCYTE COUNT DECREASED [None]
  - MYALGIA [None]
  - PCO2 DECREASED [None]
